FAERS Safety Report 19084580 (Version 1)
Quarter: 2021Q2

REPORT INFORMATION
  Report Type: Spontaneous
  Country: US (occurrence: US)
  Receive Date: 20210401
  Receipt Date: 20210401
  Transmission Date: 20210717
  Serious: No
  Sender: FDA-Public Use
  Company Number: US-IBSA PHARMA-2019-IBS-00779

PATIENT
  Age: 80 Year
  Weight: 53 kg

DRUGS (2)
  1. DICLOFENAC [Suspect]
     Active Substance: DICLOFENAC
     Indication: BACK PAIN
  2. DICLOFENAC [Suspect]
     Active Substance: DICLOFENAC
     Indication: BACK DISORDER
     Dosage: 1 DF EVERY TWELVE HOURS AS NEEDED
     Route: 061
     Dates: start: 20190617, end: 2019

REACTIONS (4)
  - Poor quality product administered [Unknown]
  - Product quality issue [Unknown]
  - Drug ineffective [Not Recovered/Not Resolved]
  - No adverse event [Unknown]

NARRATIVE: CASE EVENT DATE: 20190618
